FAERS Safety Report 8132596-0 (Version None)
Quarter: 2012Q1

REPORT INFORMATION
  Report Type: 
  Country: None (occurrence: None)
  Receive Date: 20120213
  Receipt Date: 20120202
  Transmission Date: 20120608
  Serious: Yes (Other)
  Sender: FDA-Public Use
  Company Number: BR-NOVOPROD-344295

PATIENT
  Age: 48 Year
  Sex: Male
  Weight: 68 kg

DRUGS (3)
  1. NOVOLIN N [Suspect]
     Dosage: 20 U IN MORNING TO 15 U AT NIGHT
     Route: 058
  2. NOVOLIN N [Suspect]
     Dosage: 20 U IN MORNING TO 20 U AT NIGHT
     Route: 058
  3. NOVOLIN N [Suspect]
     Indication: TYPE 2 DIABETES MELLITUS
     Dosage: 20 U IN MORNING TO 20 U AT NIGHT
     Route: 058
     Dates: start: 20060202

REACTIONS (2)
  - DIABETES MELLITUS INADEQUATE CONTROL [None]
  - LOSS OF CONSCIOUSNESS [None]
